FAERS Safety Report 17063646 (Version 1)
Quarter: 2019Q4

REPORT INFORMATION
  Report Type: Spontaneous
  Country: US (occurrence: US)
  Receive Date: 20191122
  Receipt Date: 20191122
  Transmission Date: 20200122
  Serious: No
  Sender: FDA-Public Use
  Company Number: US-VERTEX PHARMACEUTICALS-2019-011578

PATIENT
  Sex: Female

DRUGS (5)
  1. PULMOZYME [Concomitant]
     Active Substance: DORNASE ALFA
     Dosage: 2.5 MG
     Route: 055
  2. XOLAIR [Concomitant]
     Active Substance: OMALIZUMAB
     Dosage: 225 MG
     Route: 058
  3. CAYSTON [Concomitant]
     Active Substance: AZTREONAM
     Dosage: 75 MG, TID
     Route: 055
  4. SYMDEKO [Suspect]
     Active Substance: IVACAFTOR\TEZACAFTOR
     Indication: CYSTIC FIBROSIS
     Dosage: 100MG TEZACAFTOR/150MG IVACAFTOR, 150MG IVACAFTOR, BID
     Route: 048
     Dates: start: 2017
  5. TOBI [Concomitant]
     Active Substance: TOBRAMYCIN
     Dosage: 300 MG
     Route: 055

REACTIONS (1)
  - Cough [Unknown]

NARRATIVE: CASE EVENT DATE: 2019
